FAERS Safety Report 6335655-8 (Version None)
Quarter: 2009Q3

REPORT INFORMATION
  Report Type: 
  Country: None (occurrence: None)
  Receive Date: 20090826
  Receipt Date: 20090812
  Transmission Date: 20100115
  Serious: No
  Sender: FDA-Public Use
  Company Number: DE-1169892

PATIENT
  Age: 83 Year
  Sex: Female

DRUGS (5)
  1. FLUORESCEIN SODIUM        10 % INJECTION  SOLUTION FOR INJECTION [Suspect]
     Indication: ANGIOGRAM RETINA
     Dosage: 5 ML INTRAVENOUS BOLUS
     Route: 040
     Dates: start: 20090511, end: 20090511
  2. ACETYLSALICYLIC ACID SRT [Concomitant]
  3. PLAVIX [Concomitant]
  4. METOPROLOL TARTRATE [Concomitant]
  5. ANTIHYPERTENSIVES (ANTIHYPERTENSIVES) [Concomitant]

REACTIONS (6)
  - BLOOD PRESSURE INCREASED [None]
  - CARDIOVASCULAR DISORDER [None]
  - HYPERHIDROSIS [None]
  - LOSS OF CONSCIOUSNESS [None]
  - NAUSEA [None]
  - UNRESPONSIVE TO STIMULI [None]
